FAERS Safety Report 6390681-8 (Version None)
Quarter: 2009Q4

REPORT INFORMATION
  Report Type: 
  Country: None (occurrence: None)
  Receive Date: 20091006
  Receipt Date: 20091002
  Transmission Date: 20100525
  Serious: Yes (Death)
  Sender: FDA-Public Use
  Company Number: ES-SANOFI-SYNTHELABO-F01200900900

PATIENT
  Sex: Male

DRUGS (6)
  1. OMEPRAZOLE [Concomitant]
     Indication: DRUG USE FOR UNKNOWN INDICATION
     Dosage: UNK
     Dates: start: 20090529
  2. ATENOLOL [Concomitant]
     Indication: ISCHAEMIC CARDIOMYOPATHY
     Dosage: 50 MG
     Route: 065
     Dates: start: 20090604
  3. FOLINIC ACID [Suspect]
     Dosage: 851 MG
     Route: 041
     Dates: start: 20090902, end: 20090902
  4. FLUOROURACIL [Suspect]
     Dosage: 5951 MG
     Route: 041
     Dates: start: 20090902, end: 20090902
  5. IMC-1121B [Suspect]
     Dosage: 712 MG
     Route: 041
     Dates: start: 20090902, end: 20090902
  6. OXALIPLATIN [Suspect]
     Indication: COLORECTAL CANCER METASTATIC
     Dosage: 181 MG
     Route: 041
     Dates: start: 20090902, end: 20090902

REACTIONS (1)
  - ACUTE MYOCARDIAL INFARCTION [None]
